FAERS Safety Report 25312832 (Version 1)
Quarter: 2025Q2

REPORT INFORMATION
  Report Type: Spontaneous
  Country: AR (occurrence: AR)
  Receive Date: 20250514
  Receipt Date: 20250514
  Transmission Date: 20250716
  Serious: Yes (Death)
  Sender: PFIZER
  Company Number: AR-PFIZER INC-202500100173

PATIENT
  Age: 74 Year
  Sex: Male

DRUGS (1)
  1. VYNDAMAX [Suspect]
     Active Substance: TAFAMIDIS
     Indication: Cardiac amyloidosis
     Dosage: 61 MG, DAILY
     Dates: start: 20241028

REACTIONS (2)
  - Myocardial infarction [Fatal]
  - Infarction [Fatal]

NARRATIVE: CASE EVENT DATE: 20250501
